FAERS Safety Report 5519463-3 (Version None)
Quarter: 2007Q4

REPORT INFORMATION
  Report Type: 
  Country: None (occurrence: None)
  Receive Date: 20071116
  Receipt Date: 20071114
  Transmission Date: 20080405
  Serious: No
  Sender: FDA-Public Use
  Company Number: US-MERCK-0710USA02464

PATIENT
  Age: 72 Year
  Sex: Male
  Weight: 103 kg

DRUGS (4)
  1. JANUVIA [Suspect]
     Indication: DIABETES MELLITUS
     Route: 048
     Dates: start: 20070716, end: 20070912
  2. ACTOS [Concomitant]
     Route: 065
  3. [THERAPY UNSPECIFIED] [Concomitant]
     Route: 065
  4. STATIN (UNSPECIFIED) [Concomitant]
     Route: 065

REACTIONS (1)
  - ADENOCARCINOMA PANCREAS [None]
